FAERS Safety Report 18704226 (Version 1)
Quarter: 2021Q1

REPORT INFORMATION
  Report Type: Spontaneous
  Country: US (occurrence: US)
  Receive Date: 20210106
  Receipt Date: 20210106
  Transmission Date: 20210419
  Serious: Yes (Hospitalization, Other)
  Sender: FDA-Public Use
  Company Number: US-CIPLA LTD.-2020US09557

PATIENT

DRUGS (1)
  1. AZACITIDINE. [Suspect]
     Active Substance: AZACITIDINE
     Indication: PRODUCT USED FOR UNKNOWN INDICATION
     Dosage: UNK
     Route: 065

REACTIONS (5)
  - Faecaloma [Recovering/Resolving]
  - Hydronephrosis [Recovering/Resolving]
  - Hypokalaemia [Unknown]
  - Urinary tract obstruction [Recovering/Resolving]
  - Acute kidney injury [Recovering/Resolving]
